FAERS Safety Report 23800791 (Version 1)
Quarter: 2024Q2

REPORT INFORMATION
  Report Type: Spontaneous
  Country: US (occurrence: US)
  Receive Date: 20240430
  Receipt Date: 20240430
  Transmission Date: 20240716
  Serious: No
  Sender: FDA-Public Use
  Company Number: US-MYLANLABS-2024M1035592

PATIENT
  Age: 77 Year
  Sex: Female
  Weight: 58.06 kg

DRUGS (1)
  1. TYRVAYA [Suspect]
     Active Substance: VARENICLINE TARTRATE
     Indication: Product used for unknown indication
     Dosage: 0.03 MILLIGRAM (START DATE: FEB-2024)
     Route: 045

REACTIONS (1)
  - Sneezing [Unknown]

NARRATIVE: CASE EVENT DATE: 20240201
